FAERS Safety Report 17080242 (Version 1)
Quarter: 2019Q4

REPORT INFORMATION
  Report Type: Report from Study
  Country: None (occurrence: FI)
  Receive Date: 20191127
  Receipt Date: 20191127
  Transmission Date: 20200122
  Serious: Yes (Hospitalization)
  Sender: FDA-Public Use
  Company Number: FI-ABBVIE-19K-055-3013030-00

PATIENT
  Age: 73 Year
  Sex: Female

DRUGS (2)
  1. DUODOPA [Suspect]
     Active Substance: CARBIDOPA\LEVODOPA
     Indication: PARKINSON^S DISEASE
     Dosage: CONTINUOUS INFUSION 4.6 ML/H IN THE MORNING AND 3.1 ML/H IN THE EVENING, 24H TREATMENT
     Route: 050
     Dates: start: 2009, end: 2019
  2. DUODOPA [Suspect]
     Active Substance: CARBIDOPA\LEVODOPA
     Dosage: CONTINUOUS INFUSION DOSES HAD BEEN CHANGED, 24H TREATMENT
     Route: 050
     Dates: start: 2019

REACTIONS (5)
  - Wrong technique in product usage process [Not Recovered/Not Resolved]
  - Nervous system disorder [Unknown]
  - Memory impairment [Unknown]
  - Parkinson^s disease [Unknown]
  - Device dislocation [Not Recovered/Not Resolved]

NARRATIVE: CASE EVENT DATE: 2019
